FAERS Safety Report 7976704-0 (Version None)
Quarter: 2011Q4

REPORT INFORMATION
  Report Type: 
  Country: None (occurrence: None)
  Receive Date: 20111213
  Receipt Date: 20111031
  Transmission Date: 20120403
  Serious: No
  Sender: FDA-Public Use
  Company Number: US-AMGEN-USASP2011056633

PATIENT
  Sex: Male

DRUGS (2)
  1. ENBREL [Suspect]
     Indication: RHEUMATOID ARTHRITIS
     Dosage: 50 MG, QWK
     Dates: start: 20071213
  2. ENBREL [Suspect]
     Indication: OSTEOARTHRITIS

REACTIONS (3)
  - ARTHRITIS [None]
  - BONE PAIN [None]
  - EXOSTOSIS [None]
